FAERS Safety Report 8887377 (Version 1)
Quarter: 2012Q4

REPORT INFORMATION
  Report Type: 
  Country: US (occurrence: US)
  Receive Date: 20121105
  Receipt Date: 20121105
  Transmission Date: 20130627
  Serious: No
  Sender: FDA-Public Use
  Company Number: US-009507513-1210USA011245

PATIENT
  Age: 63 Year
  Sex: Female

DRUGS (3)
  1. DULERA [Suspect]
     Indication: ASTHMA
     Dosage: 2 puffs taken in the morning and 2 puffs taken at night
     Route: 055
     Dates: start: 2012, end: 2012
  2. DULERA [Suspect]
     Dosage: UNK
  3. QVAR [Concomitant]

REACTIONS (2)
  - Chest pain [Recovered/Resolved]
  - Dyspnoea [Recovered/Resolved]
